FAERS Safety Report 5244936-0 (Version None)
Quarter: 2007Q1

REPORT INFORMATION
  Report Type: 
  Country: None (occurrence: None)
  Receive Date: 20070221
  Receipt Date: 20070221
  Transmission Date: 20070707
  Serious: Yes (Hospitalization)
  Sender: FDA-Public Use
  Company Number: None

PATIENT
  Sex: Female
  Weight: 102 kg

DRUGS (2)
  1. CARBOPLATIN [Suspect]
     Dosage: 459 MG
  2. TAXOL [Suspect]
     Dosage: 364 MG

REACTIONS (6)
  - ATRIAL FIBRILLATION [None]
  - DIARRHOEA [None]
  - DISEASE PROGRESSION [None]
  - LARGE INTESTINAL OBSTRUCTION [None]
  - PULMONARY EMBOLISM [None]
  - SEPSIS [None]
